FAERS Safety Report 20637664 (Version 1)
Quarter: 2022Q1

REPORT INFORMATION
  Report Type: Spontaneous
  Country: US (occurrence: US)
  Receive Date: 20220325
  Receipt Date: 20220325
  Transmission Date: 20220423
  Serious: No
  Sender: FDA-Public Use
  Company Number: US-ORGANON-O2203USA002085

PATIENT
  Age: 38 Year
  Sex: Female
  Weight: 86.18 kg

DRUGS (2)
  1. NEXPLANON [Suspect]
     Active Substance: ETONOGESTREL
     Dosage: 68 MG ROD (1 IMPLANT) IN RIGHT UPPER ARM
     Route: 059
     Dates: start: 20220316, end: 20220316
  2. NEXPLANON [Concomitant]
     Active Substance: ETONOGESTREL
     Dosage: 1 IMPLANT
     Route: 059
     Dates: end: 20220316

REACTIONS (3)
  - Complication of device insertion [Recovered/Resolved]
  - Device kink [Recovered/Resolved]
  - Poor quality device used [Unknown]

NARRATIVE: CASE EVENT DATE: 20220316
